FAERS Safety Report 6610296-3 (Version None)
Quarter: 2010Q1

REPORT INFORMATION
  Report Type: 
  Country: None (occurrence: None)
  Receive Date: 20100302
  Receipt Date: 20090819
  Transmission Date: 20100710
  Serious: No
  Sender: FDA-Public Use
  Company Number: US-TYCO HEALTHCARE/MALLINCKRODT-T200901576

PATIENT
  Age: 40 Year
  Sex: Female

DRUGS (3)
  1. TECHNESCAN [Suspect]
     Indication: BONE SCAN
     Dosage: UNK
     Dates: start: 20090818, end: 20090818
  2. DECADRON [Suspect]
     Indication: DRUG USE FOR UNKNOWN INDICATION
     Dosage: UNK
     Dates: start: 20090818, end: 20090818
  3. ULTRA-TECHNEKOW [Concomitant]
     Indication: BONE SCAN
     Dosage: UNK
     Dates: start: 20090818, end: 20090818

REACTIONS (1)
  - DRUG INEFFECTIVE [None]
